FAERS Safety Report 17678919 (Version 3)
Quarter: 2020Q2

REPORT INFORMATION
  Report Type: Report from Study
  Country: FR (occurrence: FR)
  Receive Date: 20200417
  Receipt Date: 20200623
  Transmission Date: 20200714
  Serious: Yes (Death, Other)
  Sender: FDA-Public Use
  Company Number: FR-ADVANZ PHARMA-202004002835

PATIENT

DRUGS (1)
  1. HYDROXYCHLOROQUINE [Suspect]
     Active Substance: HYDROXYCHLOROQUINE
     Indication: COVID-19
     Dosage: 600 MG, QD (FILM-COATED TABLET)
     Route: 042
     Dates: start: 20200331, end: 20200403

REACTIONS (4)
  - Atrial fibrillation [Recovered/Resolved]
  - Off label use [Unknown]
  - Septic shock [Fatal]
  - Renal impairment [Fatal]

NARRATIVE: CASE EVENT DATE: 20200331
